FAERS Safety Report 6776083 (Version 2)
Quarter: 2020Q4

REPORT INFORMATION
  Report Type: Spontaneous
  Country: MX (occurrence: MX)
  Receive Date: 20081001
  Receipt Date: 20201229
  Transmission Date: 20210114
  Serious: Yes (Other)
  Sender: FDA-Public Use
  Company Number: PHBS2008MX05833

PATIENT
  Age: 60 Year
  Sex: Male

DRUGS (6)
  1. OFLOXACIN. [Concomitant]
     Active Substance: OFLOXACIN
     Indication: PRODUCT USED FOR UNKNOWN INDICATION
     Dosage: 400 MG, QD
     Route: 065
  2. RIFAMPICIN [Suspect]
     Active Substance: RIFAMPIN
     Indication: LEPROMATOUS LEPROSY
     Dosage: 600 MG, QD
     Route: 065
  3. CLOFAZIMINE [Suspect]
     Active Substance: CLOFAZIMINE
     Dosage: 50 MG, QD
     Route: 065
  4. DAPSONE. [Suspect]
     Active Substance: DAPSONE
     Indication: LEPROMATOUS LEPROSY
     Dosage: 100 MG, QD
     Route: 065
  5. PREDNISONE. [Concomitant]
     Active Substance: PREDNISONE
     Indication: PRODUCT USED FOR UNKNOWN INDICATION
     Dosage: 50 MG, QD
     Route: 065
  6. CLOFAZIMINE [Suspect]
     Active Substance: CLOFAZIMINE
     Indication: LEPROMATOUS LEPROSY
     Dosage: 300 MG, QD
     Route: 065

REACTIONS (11)
  - Pathology test [Recovered/Resolved]
  - Neuropathy peripheral [Recovered/Resolved]
  - Lepromatous leprosy [Recovered/Resolved]
  - Malaise [Recovered/Resolved]
  - Dysaesthesia [Recovered/Resolved]
  - Dyspnoea [Recovered/Resolved]
  - Lymphocytic infiltration [Recovered/Resolved]
  - Smear site unspecified abnormal [Recovered/Resolved]
  - Pyrexia [Recovered/Resolved]
  - Anaesthesia [Recovered/Resolved]
  - Condition aggravated [Recovered/Resolved]
